FAERS Safety Report 7663211-8 (Version None)
Quarter: 2011Q3

REPORT INFORMATION
  Report Type: 
  Country: None (occurrence: None)
  Receive Date: 20110805
  Receipt Date: 20100810
  Transmission Date: 20111222
  Serious: No
  Sender: FDA-Public Use
  Company Number: US-ABBOTT-10P-163-0662966-00

PATIENT
  Sex: Male
  Weight: 88.53 kg

DRUGS (3)
  1. ASPIRIN [Concomitant]
     Indication: PRODUCT USED FOR UNKNOWN INDICATION
     Route: 048
  2. SIMVASTATIN [Concomitant]
     Indication: PRODUCT USED FOR UNKNOWN INDICATION
     Route: 048
  3. NIASPAN [Suspect]
     Indication: DYSLIPIDAEMIA
     Dosage: 500 MG DAILY AT BEDTIME
     Route: 048
     Dates: start: 20100803

REACTIONS (2)
  - MIDDLE INSOMNIA [None]
  - POOR QUALITY SLEEP [None]
